FAERS Safety Report 8032989-6 (Version None)
Quarter: 2011Q4

REPORT INFORMATION
  Report Type: 
  Country: None (occurrence: None)
  Receive Date: 20111223
  Receipt Date: 20111214
  Transmission Date: 20120403
  Serious: Yes (Other)
  Sender: FDA-Public Use
  Company Number: 2011MA017609

PATIENT
  Sex: Male

DRUGS (12)
  1. TOPROL-XL [Concomitant]
  2. COUMADIN [Concomitant]
  3. CIPROFLOXACIN [Concomitant]
  4. PROSCAR [Concomitant]
  5. ZANTAC [Concomitant]
  6. DIGOXIN [Suspect]
     Dosage: 0.25 MG; QD; PO
     Route: 048
     Dates: start: 20041028, end: 20081208
  7. AMOXICILLIN [Concomitant]
  8. GENTAMICIN [Concomitant]
  9. ASPIRIN [Concomitant]
  10. PRINIVIL [Concomitant]
  11. LASIX [Concomitant]
  12. POTASSIUM CHLORIDE [Concomitant]

REACTIONS (6)
  - BLOOD PRESSURE INCREASED [None]
  - URINARY TRACT INFECTION [None]
  - AORTIC VALVE REPLACEMENT [None]
  - INTERNATIONAL NORMALISED RATIO INCREASED [None]
  - PYELONEPHRITIS [None]
  - BENIGN PROSTATIC HYPERPLASIA [None]
